FAERS Safety Report 9351534 (Version 1)
Quarter: 2013Q2

REPORT INFORMATION
  Report Type: Spontaneous
  Country: US (occurrence: US)
  Receive Date: 20130617
  Receipt Date: 20130617
  Transmission Date: 20140414
  Serious: No
  Sender: FDA-Public Use
  Company Number: US-PFIZER INC-2013177146

PATIENT
  Sex: Male

DRUGS (2)
  1. GENOTROPIN [Suspect]
     Indication: GROWTH HORMONE DEFICIENCY
     Dosage: UNK
  2. LETROZOLE [Concomitant]
     Indication: EPIPHYSEAL DISORDER
     Dosage: UNK

REACTIONS (2)
  - Drug effect incomplete [Unknown]
  - Hypertrichosis [Unknown]
